FAERS Safety Report 25038999 (Version 2)
Quarter: 2025Q1

REPORT INFORMATION
  Report Type: Report from Study
  Country: US (occurrence: US)
  Receive Date: 20250305
  Receipt Date: 20250319
  Transmission Date: 20250409
  Serious: Yes (Other)
  Sender: NOVARTIS
  Company Number: US-002147023-NVSC2025US032806

PATIENT
  Sex: Female

DRUGS (1)
  1. LEQVIO [Suspect]
     Active Substance: INCLISIRAN SODIUM
     Indication: Product used for unknown indication
     Route: 058
     Dates: start: 20241212

REACTIONS (10)
  - Insomnia [Unknown]
  - Arthralgia [Unknown]
  - Dizziness [Unknown]
  - Disturbance in attention [Unknown]
  - Depression [Unknown]
  - Eating disorder [Unknown]
  - Crying [Unknown]
  - Headache [Unknown]
  - Pain [Unknown]
  - Low density lipoprotein decreased [Unknown]
